FAERS Safety Report 17846433 (Version 1)
Quarter: 2020Q2

REPORT INFORMATION
  Report Type: Report from Study
  Country: US (occurrence: US)
  Receive Date: 20200601
  Receipt Date: 20200601
  Transmission Date: 20200714
  Serious: Yes (Other)
  Sender: FDA-Public Use
  Company Number: US-UCBSA-2020018779

PATIENT
  Sex: Female
  Weight: 83 kg

DRUGS (2)
  1. LACOSAMIDE. [Suspect]
     Active Substance: LACOSAMIDE
     Indication: SEIZURE
     Dosage: 150 MILLIGRAM, 2X/DAY (BID)
     Route: 048
     Dates: start: 201809
  2. KEPPRA [Suspect]
     Active Substance: LEVETIRACETAM
     Indication: SEIZURE
     Dosage: 1000 MG TWICE DAILY AND 250 TWICE DAILY
     Route: 048
     Dates: start: 201809

REACTIONS (2)
  - Glioblastoma [Not Recovered/Not Resolved]
  - Blood count abnormal [Not Recovered/Not Resolved]
